FAERS Safety Report 4287986-3 (Version None)
Quarter: 2004Q1

REPORT INFORMATION
  Report Type: 
  Country: None (occurrence: None)
  Receive Date: 20040205
  Receipt Date: 20040115
  Transmission Date: 20041129
  Serious: Yes (Hospitalization)
  Sender: FDA-Public Use
  Company Number: F01200400078

PATIENT
  Age: 62 Year
  Sex: Male

DRUGS (8)
  1. OXALIPLATIN [Suspect]
     Indication: COLORECTAL CANCER METASTATIC
     Dosage: 160 MG Q3W; INTRAVENOUS NOS
     Route: 042
     Dates: start: 20030722, end: 20031118
  2. CAPECITABINE [Suspect]
     Dosage: 1500 MG TWICE A DAY FROM DAY 1 TO DAY 15, Q3W; ORAL
     Route: 048
     Dates: start: 20030722, end: 20031118
  3. LEXOTAN (BROMAZEPAM) [Concomitant]
  4. ALTIZIDE [Concomitant]
  5. ATENOLOL [Concomitant]
  6. CLONIDINE [Concomitant]
  7. OMEPRAZOLE [Concomitant]
  8. IMODIUM [Concomitant]

REACTIONS (4)
  - DIARRHOEA [None]
  - GENERAL PHYSICAL HEALTH DETERIORATION [None]
  - LARYNGOSPASM [None]
  - SEPSIS [None]
